FAERS Safety Report 6261158-5 (Version None)
Quarter: 2009Q3

REPORT INFORMATION
  Report Type: 
  Country: None (occurrence: None)
  Receive Date: 20090709
  Receipt Date: 20080619
  Transmission Date: 20100115
  Serious: No
  Sender: FDA-Public Use
  Company Number: US-KINGPHARMUSA00001-K200800723

PATIENT
  Age: 51 Year
  Sex: Female
  Weight: 68.027 kg

DRUGS (3)
  1. LEVOXYL [Suspect]
     Indication: AUTOIMMUNE THYROIDITIS
     Dosage: 112 MCG, QD
     Route: 048
     Dates: start: 19930101
  2. CLONAZEPAM [Concomitant]
     Indication: RESTLESS LEGS SYNDROME
  3. ESZOPICLONE [Concomitant]
     Indication: INSOMNIA
     Dosage: UNK, UNK

REACTIONS (5)
  - ANXIETY [None]
  - DYSPNOEA [None]
  - HYPERTHYROIDISM [None]
  - INSOMNIA [None]
  - PALPITATIONS [None]
